FAERS Safety Report 14657979 (Version 1)
Quarter: 2018Q1

REPORT INFORMATION
  Report Type: Spontaneous
  Country: US (occurrence: US)
  Receive Date: 20180320
  Receipt Date: 20180320
  Transmission Date: 20180509
  Serious: No
  Sender: FDA-Public Use
  Company Number: US-TEVA-798520USA

PATIENT
  Sex: Female

DRUGS (12)
  1. CALCIUM, MAGNESIUM, ZINC WITH VITAMIN D [Concomitant]
  2. FISH OIL [Concomitant]
     Active Substance: FISH OIL
     Dosage: 1000 MG 300 MG OMEGA 3
  3. VALSARTAN. [Concomitant]
     Active Substance: VALSARTAN
     Dosage: 320 MILLIGRAM DAILY;
  4. ATORVASTATIN [Concomitant]
     Active Substance: ATORVASTATIN
     Indication: BLOOD CHOLESTEROL
     Dosage: 10 MILLIGRAM DAILY;
  5. VITAMIN D [Concomitant]
     Active Substance: CHOLECALCIFEROL
     Dosage: 50,000 UNITS
  6. CICLOSPORIN [Suspect]
     Active Substance: CYCLOSPORINE
     Indication: RENAL DISORDER
     Dosage: 200 MILLIGRAM DAILY;
     Dates: start: 2017
  7. AMLODIPINE [Concomitant]
     Active Substance: AMLODIPINE BESYLATE
     Indication: BLOOD PRESSURE MEASUREMENT
     Dosage: 10 MILLIGRAM DAILY;
  8. ZYRTEC [Concomitant]
     Active Substance: CETIRIZINE HYDROCHLORIDE
     Dosage: 10 MILLIGRAM DAILY; IF NEEDED
  9. CENTRUM SILVER [Concomitant]
     Active Substance: MINERALS\VITAMINS
  10. VITAMIN C W/ROSE HIPS 500 MG [Concomitant]
     Dosage: 500 MILLIGRAM DAILY;
  11. PROBIOTIC [Concomitant]
     Active Substance: PROBIOTICS NOS
     Dosage: 15 MILLION
  12. AMLODIPINE [Concomitant]
     Active Substance: AMLODIPINE BESYLATE
     Dosage: 5 MILLIGRAM DAILY;
     Dates: start: 201606

REACTIONS (2)
  - Tremor [Unknown]
  - Product taste abnormal [Unknown]
